FAERS Safety Report 24389028 (Version 1)
Quarter: 2024Q4

REPORT INFORMATION
  Report Type: Report from Study
  Country: US (occurrence: US)
  Receive Date: 20241002
  Receipt Date: 20241002
  Transmission Date: 20250115
  Serious: Yes (Other)
  Sender: ABBVIE
  Company Number: US-ABBVIE-5941451

PATIENT
  Sex: Female

DRUGS (1)
  1. HUMIRA [Suspect]
     Active Substance: ADALIMUMAB
     Indication: Alopecia scarring
     Dosage: 2 PENS, CITRATE FREE, DAY 1 OR LOADING DOSE
     Route: 058
     Dates: start: 20240924

REACTIONS (4)
  - Uterine haemorrhage [Unknown]
  - Off label use [Unknown]
  - Fracture [Unknown]
  - Abdominal pain lower [Unknown]

NARRATIVE: CASE EVENT DATE: 20240101
